FAERS Safety Report 7994959-3 (Version None)
Quarter: 2011Q4

REPORT INFORMATION
  Report Type: 
  Country: None (occurrence: None)
  Receive Date: 20111220
  Receipt Date: 20111207
  Transmission Date: 20120403
  Serious: Yes (Other)
  Sender: FDA-Public Use
  Company Number: FR-ROCHE-1021105

PATIENT

DRUGS (8)
  1. MABTHERA [Suspect]
     Indication: B-CELL LYMPHOMA
     Dosage: ON DAY 1 FOR 6 CYCLES
  2. CYCLOPHOSPHAMIDE [Suspect]
     Indication: B-CELL LYMPHOMA
     Dosage: ON DAY 1 FOR 6 CYCLES
  3. VINCRISTINE [Suspect]
     Indication: B-CELL LYMPHOMA
     Dosage: ON DAY 1 FOR 6 CYCLES
  4. LENALIDOMIDE [Suspect]
     Indication: B-CELL LYMPHOMA
     Dosage: DOSE ESCALATED FROM 5 TO 25 MG, FREQUENCY: DAYS 1-14 OF EACH CYCLE
     Route: 048
  5. DOXORUBICIN HCL [Suspect]
     Indication: B-CELL LYMPHOMA
     Dosage: ON DAY 1 FOR 6 CYCLES
  6. ASPIRIN [Concomitant]
     Route: 048
  7. PREDNISONE TAB [Suspect]
     Indication: B-CELL LYMPHOMA
     Dosage: DAYS 1-5 OF EACH 21 DAY .CYCLE
  8. PEGFILGRASTIM [Concomitant]
     Dosage: ADMINISTERED ON DAY 4 OF EACH CYCLE

REACTIONS (5)
  - PULMONARY EMBOLISM [None]
  - NEUTROPENIA [None]
  - THROMBOCYTOPENIA [None]
  - FEBRILE NEUTROPENIA [None]
  - DEEP VEIN THROMBOSIS [None]
